FAERS Safety Report 8212272-6 (Version None)
Quarter: 2012Q1

REPORT INFORMATION
  Report Type: 
  Country: None (occurrence: None)
  Receive Date: 20120315
  Receipt Date: 20120305
  Transmission Date: 20120608
  Serious: Yes (Other)
  Sender: FDA-Public Use
  Company Number: CA-BAXTER-2012BH006349

PATIENT
  Age: 18 Month
  Sex: Male
  Weight: 14 kg

DRUGS (3)
  1. FEIBA [Suspect]
     Route: 042
     Dates: start: 20120302, end: 20120302
  2. FEIBA [Suspect]
     Indication: PROPHYLAXIS
     Route: 042
     Dates: start: 20120224, end: 20120224
  3. FEIBA [Suspect]
     Route: 042

REACTIONS (11)
  - UPPER AIRWAY OBSTRUCTION [None]
  - EMOTIONAL DISTRESS [None]
  - COUGH [None]
  - ERYTHEMA [None]
  - URTICARIA [None]
  - CRYING [None]
  - OXYGEN SATURATION DECREASED [None]
  - ANAPHYLACTIC REACTION [None]
  - OEDEMA [None]
  - DYSPNOEA [None]
  - DROOLING [None]
